FAERS Safety Report 8966351 (Version 1)
Quarter: 2012Q4

REPORT INFORMATION
  Report Type: 
  Country: US (occurrence: US)
  Receive Date: 20121214
  Receipt Date: 20121214
  Transmission Date: 20130627
  Serious: Yes (Congenital Anomaly, Other)
  Sender: FDA-Public Use
  Company Number: US-VIIV HEALTHCARE LIMITED-A0923419A

PATIENT
  Sex: Male
  Weight: 2.9 kg

DRUGS (7)
  1. COMBIVIR [Suspect]
     Indication: ANTIRETROVIRAL THERAPY
     Dosage: 2TAB per day
     Route: 064
     Dates: start: 20100902, end: 20101029
  2. ZIAGEN [Suspect]
     Indication: ANTIVIRAL TREATMENT
     Dosage: 600MGD per day
     Route: 064
     Dates: start: 20101102
  3. EPIVIR [Suspect]
     Indication: ANTIVIRAL TREATMENT
     Dosage: 300MGD Unknown
     Route: 064
     Dates: start: 20101102
  4. RETROVIR [Suspect]
     Indication: ANTIVIRAL TREATMENT
     Dosage: 2MGKH Per day
     Route: 064
     Dates: start: 20110127, end: 20110127
  5. RETROVIR [Suspect]
     Indication: ANTIVIRAL TREATMENT
     Dosage: 1MGKH Per day
     Route: 064
     Dates: start: 20110127, end: 20110127
  6. VIRACEPT [Suspect]
     Indication: ANTIVIRAL TREATMENT
     Dosage: 2500MGD Unknown
     Route: 064
     Dates: start: 20100902, end: 20101029
  7. REYATAZ [Suspect]
     Indication: ANTIVIRAL TREATMENT
     Dosage: 400MGD Unknown
     Route: 064
     Dates: start: 20101102

REACTIONS (6)
  - Congenital cystic kidney disease [Unknown]
  - Obstructive uropathy [Unknown]
  - Urethral valves [Unknown]
  - Hydronephrosis [Unknown]
  - Vesicoureteric reflux [Unknown]
  - Foetal exposure during pregnancy [Unknown]
